FAERS Safety Report 5646200-4 (Version None)
Quarter: 2008Q1

REPORT INFORMATION
  Report Type: 
  Country: None (occurrence: None)
  Receive Date: 20080227
  Receipt Date: 20080220
  Transmission Date: 20080703
  Serious: Yes (Other)
  Sender: FDA-Public Use
  Company Number: POMP-1000062

PATIENT
  Age: 3 Year
  Sex: Female

DRUGS (1)
  1. MYOZYME [Suspect]
     Indication: GLYCOGEN STORAGE DISEASE TYPE II
     Dosage: 20 MG/KG, Q2W, INTRAVENOUS
     Route: 042
     Dates: start: 20040426

REACTIONS (4)
  - BODY TEMPERATURE INCREASED [None]
  - CONVULSION [None]
  - DISEASE PROGRESSION [None]
  - NEUROLOGICAL SYMPTOM [None]
